FAERS Safety Report 4681326-3 (Version None)
Quarter: 2005Q2

REPORT INFORMATION
  Report Type: 
  Country: None (occurrence: None)
  Receive Date: 20050601
  Receipt Date: 20050518
  Transmission Date: 20051028
  Serious: Yes (Other)
  Sender: FDA-Public Use
  Company Number: 2005-127412-NL

PATIENT
  Age: 25 Year
  Sex: Female
  Weight: 52.2 kg

DRUGS (4)
  1. NUVARING [Suspect]
     Indication: CONTRACEPTION
     Dosage: VAGINAL
     Route: 067
     Dates: start: 20040401
  2. MULTI-VITAMINS [Concomitant]
  3. ASCORBIC ACID [Concomitant]
  4. UNSPECIFIED ANTIBIOTICS (POSSIBLY ZITHROMAX) [Concomitant]

REACTIONS (6)
  - COLPOSCOPY ABNORMAL [None]
  - PRECANCEROUS CELLS PRESENT [None]
  - PROCEDURAL COMPLICATION [None]
  - SMEAR CERVIX ABNORMAL [None]
  - VAGINAL BURNING SENSATION [None]
  - VAGINAL PAIN [None]
